FAERS Safety Report 8743995 (Version 2)
Quarter: 2012Q4

REPORT INFORMATION
  Report Type: Report from Study
  Country: ES (occurrence: ES)
  Receive Date: 20120824
  Receipt Date: 20121012
  Transmission Date: 20130627
  Serious: Yes (Hospitalization, Other)
  Sender: FDA-Public Use
  Company Number: ES-ABBOTT-12P-144-0970314-01

PATIENT
  Age: 29 Year
  Sex: Male
  Weight: 69 kg

DRUGS (4)
  1. HUMIRA [Suspect]
     Indication: CROHN^S DISEASE
     Route: 058
     Dates: start: 20090611, end: 20090611
  2. HUMIRA [Suspect]
     Route: 058
  3. HUMIRA [Suspect]
     Route: 058
     Dates: end: 20100118
  4. AZATHIOPRINE [Concomitant]
     Indication: ROUTINE HEALTH MAINTENANCE
     Dates: start: 20060525

REACTIONS (1)
  - Crohn^s disease [Recovered/Resolved]
